FAERS Safety Report 17228962 (Version 1)
Quarter: 2020Q1

REPORT INFORMATION
  Report Type: Spontaneous
  Country: US (occurrence: US)
  Receive Date: 20200102
  Receipt Date: 20200102
  Transmission Date: 20200409
  Serious: Yes (Hospitalization)
  Sender: FDA-Public Use
  Company Number: None

PATIENT
  Sex: Female

DRUGS (4)
  1. BENZONATATE, MIRTAZAPINE, FUROSEMIDE [Concomitant]
  2. CYCLOSPORINE. [Suspect]
     Active Substance: CYCLOSPORINE
     Indication: THROMBOCYTOPENIA
     Route: 048
     Dates: start: 20191207
  3. FOLIC ACID, SMZ/TMP DS [Concomitant]
  4. PREDNISONE, ACYCLOVIR, CLONAZEPAM, PANTOPRAZOLE [Concomitant]

REACTIONS (6)
  - White blood cell count decreased [None]
  - Platelet count decreased [None]
  - Red blood cell count decreased [None]
  - Weight decreased [None]
  - Transfusion [None]
  - Anaemia [None]
